FAERS Safety Report 21305948 (Version 1)
Quarter: 2022Q3

REPORT INFORMATION
  Report Type: Report from Study
  Country: CO (occurrence: CO)
  Receive Date: 20220908
  Receipt Date: 20220908
  Transmission Date: 20221026
  Serious: Yes (Hospitalization)
  Sender: FDA-Public Use
  Company Number: CO-JNJFOC-20220909316

PATIENT
  Age: 49 Year
  Sex: Female
  Weight: 51 kg

DRUGS (5)
  1. SIMPONI [Suspect]
     Active Substance: GOLIMUMAB
     Indication: Ankylosing spondylitis
     Route: 058
     Dates: start: 202002, end: 20220628
  2. ETORICOXIB [Concomitant]
     Active Substance: ETORICOXIB
  3. MELOXICAM [Concomitant]
     Active Substance: MELOXICAM
  4. SULFASALAZINE [Concomitant]
     Active Substance: SULFASALAZINE
  5. PREGABALIN [Concomitant]
     Active Substance: PREGABALIN

REACTIONS (2)
  - Hysterectomy [Recovering/Resolving]
  - Salpingectomy [Recovering/Resolving]

NARRATIVE: CASE EVENT DATE: 20220804
